FAERS Safety Report 4915804-6 (Version None)
Quarter: 2006Q1

REPORT INFORMATION
  Report Type: 
  Country: None (occurrence: None)
  Receive Date: 20060217
  Receipt Date: 20060203
  Transmission Date: 20060701
  Serious: Yes (Hospitalization)
  Sender: FDA-Public Use
  Company Number: FR-ROCHE-435728

PATIENT
  Sex: Male

DRUGS (2)
  1. PEGASYS [Suspect]
     Indication: HEPATITIS C
     Route: 065
     Dates: end: 20050815
  2. COPEGUS [Suspect]
     Indication: HEPATITIS C
     Route: 065
     Dates: end: 20050815

REACTIONS (2)
  - GRANULOMATOUS LIVER DISEASE [None]
  - NEUTROPENIA [None]
